FAERS Safety Report 8221290-3 (Version None)
Quarter: 2012Q1

REPORT INFORMATION
  Report Type: 
  Country: None (occurrence: None)
  Receive Date: 20120316
  Receipt Date: 20120229
  Transmission Date: 20120608
  Serious: Yes (Other)
  Sender: FDA-Public Use
  Company Number: JPI-P-020068

PATIENT
  Age: 41 Year
  Sex: Female

DRUGS (3)
  1. XYREM [Suspect]
     Indication: SOMNOLENCE
     Dosage: ORAL
     Route: 048
     Dates: start: 20110701
  2. XYREM [Suspect]
     Indication: NARCOLEPSY
     Dosage: ORAL
     Route: 048
     Dates: start: 20110701
  3. HYDROCODONE BITARTRATE AND ACETAMINOPHEN [Suspect]
     Indication: PROCEDURAL PAIN
     Dates: start: 20120201

REACTIONS (4)
  - HEADACHE [None]
  - HYPERSOMNIA [None]
  - SOMNOLENCE [None]
  - ROTATOR CUFF SYNDROME [None]
